FAERS Safety Report 20641373 (Version 1)
Quarter: 2022Q1

REPORT INFORMATION
  Report Type: Spontaneous
  Country: US (occurrence: US)
  Receive Date: 20220328
  Receipt Date: 20220328
  Transmission Date: 20220423
  Serious: No
  Sender: FDA-Public Use
  Company Number: US-CIPLA LTD.-2021US05230

PATIENT

DRUGS (1)
  1. TESTOSTERONE [Suspect]
     Active Substance: TESTOSTERONE
     Indication: Product used for unknown indication
     Dosage: 84 MILLIGRAM
     Route: 065
     Dates: start: 20210723

REACTIONS (12)
  - Paranoia [Recovering/Resolving]
  - Feeling cold [Recovering/Resolving]
  - Hyperhidrosis [Recovering/Resolving]
  - Disturbance in attention [Recovering/Resolving]
  - Dysgeusia [Recovering/Resolving]
  - Blood oestrogen decreased [Unknown]
  - Feeling abnormal [Not Recovered/Not Resolved]
  - Product supply issue [Unknown]
  - Product substitution issue [Unknown]
  - Depression [Not Recovered/Not Resolved]
  - Anxiety [Not Recovered/Not Resolved]
  - Nausea [Recovering/Resolving]

NARRATIVE: CASE EVENT DATE: 20210701
